FAERS Safety Report 8406252-5 (Version None)
Quarter: 2012Q2

REPORT INFORMATION
  Report Type: 
  Country: None (occurrence: None)
  Receive Date: 20120604
  Receipt Date: 20120528
  Transmission Date: 20120825
  Serious: Yes (Hospitalization)
  Sender: FDA-Public Use
  Company Number: PHHY2012CA046777

PATIENT
  Sex: Female

DRUGS (5)
  1. PANTOPRAZOLE SODIUM [Concomitant]
     Dosage: 40 MG, DAILY
  2. EXELON [Suspect]
     Indication: DEMENTIA ALZHEIMER'S TYPE
     Dosage: 9.5 MG, QD
     Route: 062
     Dates: start: 20120201
  3. EXELON [Suspect]
     Dosage: UNK UKN, UNK
     Route: 062
     Dates: end: 20120521
  4. RISPERDAL [Concomitant]
     Dosage: UNK UKN, UNK
  5. ACETAMINOPHEN [Concomitant]
     Dosage: 500 MG, 50 TABLETS IN FIVE DAYS

REACTIONS (5)
  - VOMITING [None]
  - DYSPEPSIA [None]
  - OESOPHAGITIS [None]
  - DIARRHOEA [None]
  - NAUSEA [None]
